FAERS Safety Report 4534736-9 (Version None)
Quarter: 2004Q4

REPORT INFORMATION
  Report Type: 
  Country: None (occurrence: None)
  Receive Date: 20041222
  Receipt Date: 20031230
  Transmission Date: 20050328
  Serious: No
  Sender: FDA-Public Use
  Company Number: US-BRISTOL-MYERS SQUIBB COMPANY-12467197

PATIENT
  Age: 74 Year
  Sex: Female
  Weight: 57 kg

DRUGS (4)
  1. PRAVACHOL [Suspect]
     Indication: BLOOD CHOLESTEROL INCREASED
     Dosage: DURATION OF THERAPY:  ^SEVERAL YEARS^
     Route: 048
  2. METFORMIN HCL [Concomitant]
  3. ALTACE [Concomitant]
  4. ZOLOFT [Concomitant]

REACTIONS (1)
  - ALOPECIA [None]
